FAERS Safety Report 10362778 (Version 2)
Quarter: 2014Q3

REPORT INFORMATION
  Report Type: Spontaneous
  Country: AU (occurrence: AU)
  Receive Date: 20140805
  Receipt Date: 20140813
  Transmission Date: 20150326
  Serious: Yes (Disabling)
  Sender: FDA-Public Use
  Company Number: AU-TEVA-497626ISR

PATIENT
  Sex: Male

DRUGS (4)
  1. SINEMET 100/25 [Concomitant]
     Dosage: 4 DOSAGE FORMS DAILY;
  2. ESCITALOPRAM [Concomitant]
     Active Substance: ESCITALOPRAM OXALATE
  3. AZILECT [Suspect]
     Active Substance: RASAGILINE MESYLATE
     Dates: start: 20140708
  4. SIFROL ER 1.5MG [Concomitant]

REACTIONS (3)
  - Back pain [Unknown]
  - Sciatica [Unknown]
  - Walking aid user [Unknown]
